FAERS Safety Report 8329406 (Version 5)
Quarter: 2012Q4

REPORT INFORMATION
  Report Type: 
  Country: US (occurrence: US)
  Receive Date: 20120110
  Receipt Date: 20121019
  Transmission Date: 20130627
  Serious: Yes (Hospitalization, Other)
  Sender: FDA-Public Use
  Company Number: US-009507513-1201USA00744

PATIENT

DRUGS (4)
  1. FOSAMAX [Suspect]
     Indication: OSTEOPOROSIS
     Dosage: 70 mg, UNK
     Route: 048
     Dates: start: 1995, end: 200911
  2. BONIVA [Suspect]
     Route: 048
     Dates: start: 1995, end: 200911
  3. FOSAMAX [Suspect]
     Indication: OSTEOPOROSIS
     Dosage: 70 mg, UNK
     Route: 048
     Dates: start: 20081110, end: 20090807
  4. FOSAMAX [Suspect]
     Dosage: 70 mg, UNK
     Route: 048
     Dates: start: 20080404, end: 20080727

REACTIONS (43)
  - Aortic aneurysm [Unknown]
  - Parathyroid tumour benign [Unknown]
  - Emphysema [Unknown]
  - Irritable bowel syndrome [Unknown]
  - Goitre [Unknown]
  - Bronchitis chronic [Unknown]
  - Kyphoscoliosis [Unknown]
  - Large intestine polyp [Unknown]
  - Osteoarthritis [Unknown]
  - Coronary artery disease [Unknown]
  - Chronic obstructive pulmonary disease [Not Recovered/Not Resolved]
  - Hyperparathyroidism primary [Unknown]
  - Pulmonary mass [Unknown]
  - Hyperlipidaemia [Unknown]
  - Scoliosis [Unknown]
  - Oropharyngeal pain [Unknown]
  - Pharyngeal erythema [Unknown]
  - Upper-airway cough syndrome [Unknown]
  - Cardiac murmur [Unknown]
  - Hypereosinophilic syndrome [Recovering/Resolving]
  - Body height decreased [Unknown]
  - Hypertension [Unknown]
  - Senile dementia [Unknown]
  - Rhonchi [Unknown]
  - Chronic obstructive pulmonary disease [Unknown]
  - Fall [Unknown]
  - Oophorectomy [Unknown]
  - Bronchial hyperreactivity [Unknown]
  - Rectal haemorrhage [Unknown]
  - Haemorrhoids [Unknown]
  - Cataract [Unknown]
  - Hernia [Unknown]
  - Contusion [Unknown]
  - Pelvic fracture [Unknown]
  - Hypercalcaemia [Unknown]
  - Diarrhoea [Unknown]
  - Femur fracture [Unknown]
  - Endometrial cancer stage I [Unknown]
  - Pulmonary embolism [Unknown]
  - Femoral hernia [Unknown]
  - Respiratory failure [Recovered/Resolved]
  - Myocardial infarction [Unknown]
  - Laceration [Unknown]
